FAERS Safety Report 7243783-8 (Version None)
Quarter: 2011Q1

REPORT INFORMATION
  Report Type: 
  Country: None (occurrence: None)
  Receive Date: 20110125
  Receipt Date: 20110120
  Transmission Date: 20110831
  Serious: No
  Sender: FDA-Public Use
  Company Number: US-PFIZER INC-2011014678

PATIENT
  Sex: Male

DRUGS (2)
  1. MULTI-VITAMINS [Concomitant]
     Dosage: UNK
  2. AZITHROMYCIN [Suspect]
     Indication: BRONCHITIS
     Dosage: 250 MG, DAILY
     Route: 048
     Dates: start: 20110117

REACTIONS (3)
  - HEADACHE [None]
  - ANXIETY [None]
  - INSOMNIA [None]
